FAERS Safety Report 9891038 (Version 1)
Quarter: 2014Q1

REPORT INFORMATION
  Report Type: Spontaneous
  Country: US (occurrence: None)
  Receive Date: 20140211
  Receipt Date: 20140211
  Transmission Date: 20141002
  Serious: Yes (Other)
  Sender: FDA-Public Use
  Company Number: None

PATIENT
  Age: 26 Year
  Sex: Male
  Weight: 61.8 kg

DRUGS (1)
  1. FABRAZYME [Suspect]
     Indication: FABRY^S DISEASE
     Dosage: 5 MG EVERY 2 WK  IV
     Route: 042
     Dates: start: 20140131

REACTIONS (4)
  - Chills [None]
  - Body temperature increased [None]
  - Neuropathy peripheral [None]
  - Infusion related reaction [None]
